FAERS Safety Report 10414291 (Version 2)
Quarter: 2014Q4

REPORT INFORMATION
  Report Type: Spontaneous
  Country: US (occurrence: US)
  Receive Date: 20140828
  Receipt Date: 20141010
  Transmission Date: 20150528
  Serious: Yes (Hospitalization, Other)
  Sender: FDA-Public Use
  Company Number: US-AMGEN-USASP2014064862

PATIENT
  Age: 63 Year
  Sex: Female

DRUGS (1)
  1. ENBREL [Suspect]
     Active Substance: ETANERCEPT
     Indication: RHEUMATOID ARTHRITIS
     Dosage: 25 MG, 2 TIMES/WK
     Route: 065
     Dates: start: 20030301

REACTIONS (7)
  - Hand deformity [Not Recovered/Not Resolved]
  - Influenza [Recovered/Resolved]
  - Herpes zoster [Recovered/Resolved]
  - Foot deformity [Not Recovered/Not Resolved]
  - Asthenia [Not Recovered/Not Resolved]
  - Gallbladder operation [Recovered/Resolved]
  - Grip strength decreased [Not Recovered/Not Resolved]
